FAERS Safety Report 8488209-1 (Version None)
Quarter: 2012Q3

REPORT INFORMATION
  Report Type: 
  Country: None (occurrence: None)
  Receive Date: 20120705
  Receipt Date: 20120628
  Transmission Date: 20120928
  Serious: Yes (Hospitalization)
  Sender: FDA-Public Use
  Company Number: FR-ASTELLAS-2012EU004700

PATIENT
  Sex: Male

DRUGS (5)
  1. VESICARE [Suspect]
     Dosage: 5 MG, UID/QD
     Route: 048
  2. MINIRIN [Suspect]
     Dosage: 0.1 MG, UID/QD
     Route: 065
     Dates: start: 20110401
  3. TAMSULOSIN HCL [Suspect]
     Dosage: 0.4 MG, UID/QD
     Route: 048
     Dates: start: 20090101
  4. LYRICA [Suspect]
     Dosage: 25 MG, BID
     Route: 065
     Dates: start: 20110401
  5. TYSABRI [Suspect]
     Dosage: UNK
     Route: 042
     Dates: start: 20080201, end: 20120518

REACTIONS (1)
  - PANCREATITIS ACUTE [None]
